FAERS Safety Report 9797423 (Version 5)
Quarter: 2014Q2

REPORT INFORMATION
  Report Type: Report from Study
  Country: JP (occurrence: JP)
  Receive Date: 20140106
  Receipt Date: 20140526
  Transmission Date: 20141212
  Serious: Yes (Other)
  Sender: FDA-Public Use
  Company Number: PHHY2012JP036836

PATIENT
  Age: 60 Year
  Sex: Female

DRUGS (29)
  1. LEPONEX / CLOZARIL [Suspect]
     Indication: SCHIZOPHRENIA, PARANOID TYPE
     Dosage: 12.5 MG, DAILY
     Route: 048
     Dates: start: 20111115, end: 20111115
  2. LEPONEX / CLOZARIL [Suspect]
     Dosage: 25 MG, DAILY
     Route: 048
     Dates: start: 20111116, end: 20111118
  3. LEPONEX / CLOZARIL [Suspect]
     Dosage: 50 MG, DAILY
     Route: 048
     Dates: start: 20111119, end: 20111121
  4. LEPONEX / CLOZARIL [Suspect]
     Dosage: 75 MG, DAILY
     Route: 048
     Dates: start: 20111122, end: 20111124
  5. LEPONEX / CLOZARIL [Suspect]
     Dosage: 100 MG, DAILY
     Route: 048
     Dates: start: 20111125, end: 20111128
  6. LEPONEX / CLOZARIL [Suspect]
     Dosage: 125 MG, DAILY
     Route: 048
     Dates: start: 20111129, end: 20111201
  7. LEPONEX / CLOZARIL [Suspect]
     Dosage: 150 MG, DAILY
     Route: 048
     Dates: start: 20111202, end: 20111205
  8. LEPONEX / CLOZARIL [Suspect]
     Dosage: 175 MG, DAILY
     Route: 048
     Dates: start: 20111206, end: 20121208
  9. LEPONEX / CLOZARIL [Suspect]
     Dosage: 200 MG, DAILY
     Route: 048
     Dates: start: 20111209, end: 20130329
  10. LEPONEX / CLOZARIL [Suspect]
     Dosage: 150 MG, DAILY
     Route: 048
     Dates: start: 20120330, end: 20120418
  11. LEPONEX / CLOZARIL [Suspect]
     Dosage: 100 MG, DAILY
     Route: 048
     Dates: start: 20120419, end: 20120428
  12. LEPONEX / CLOZARIL [Suspect]
     Dosage: 50 MG, DAILY
     Route: 048
     Dates: start: 20120429, end: 20120502
  13. LEPONEX / CLOZARIL [Suspect]
     Dosage: 75 MG, DAILY
     Route: 048
     Dates: start: 20120503, end: 20120530
  14. RISUMIC [Concomitant]
     Indication: HYPOTENSION
     Dosage: 20 MG, UNK
     Route: 048
     Dates: start: 20120327
  15. SHUPRASE [Concomitant]
     Indication: HYPOTENSION
     Dosage: 4 MG, UNK
     Route: 048
     Dates: start: 20120327
  16. MAGLAX [Concomitant]
     Indication: DIARRHOEA
     Dosage: 1000 MG, UNK
     Route: 048
     Dates: start: 20120327
  17. MAGLAX [Concomitant]
     Dosage: 1000 MG, UNK
     Route: 048
  18. TASMOLIN [Concomitant]
     Indication: SCHIZOPHRENIA
     Dosage: 4 MG, UNK
     Route: 048
     Dates: start: 20120327
  19. TASMOLIN [Concomitant]
     Indication: SCHIZOPHRENIA, PARANOID TYPE
  20. CERCINE [Concomitant]
     Indication: SCHIZOPHRENIA
     Dosage: 2 MG, UNK
     Route: 048
     Dates: start: 20120327
  21. CERCINE [Concomitant]
     Indication: SCHIZOPHRENIA, PARANOID TYPE
  22. SENNOSIDE [Concomitant]
     Indication: CONSTIPATION
     Dosage: 12 MG, UNK
     Route: 048
     Dates: start: 20120327, end: 20120412
  23. CRAVIT [Concomitant]
     Dosage: 500 MG, UNK
     Route: 048
     Dates: start: 20111125, end: 20111201
  24. LAC-B [Concomitant]
     Indication: DIARRHOEA
     Dosage: 3 G, UNK
     Route: 048
     Dates: start: 20120403
  25. ABILIFY [Concomitant]
     Indication: SCHIZOPHRENIA, PARANOID TYPE
     Dosage: 12 MG, UNK
     Route: 048
     Dates: start: 20120531
  26. ABILIFY [Concomitant]
     Dosage: 18 MG, UNK
     Route: 048
  27. ABILIFY [Concomitant]
     Dosage: 24 MG, UNK
     Route: 048
  28. ABILIFY [Concomitant]
     Dosage: 12 MG, UNK
     Dates: end: 20121209
  29. MYSLEE [Concomitant]
     Indication: SCHIZOPHRENIA, PARANOID TYPE
     Dosage: 5 MG, UNK
     Route: 048
     Dates: start: 20120106, end: 20120122

REACTIONS (5)
  - Orthostatic hypotension [Not Recovered/Not Resolved]
  - Loss of consciousness [Unknown]
  - Fall [Unknown]
  - White blood cell count decreased [Recovered/Resolved]
  - Neutrophil count decreased [Recovered/Resolved]
